FAERS Safety Report 20090295 (Version 4)
Quarter: 2022Q2

REPORT INFORMATION
  Report Type: Report from Study
  Country: US (occurrence: US)
  Receive Date: 20211119
  Receipt Date: 20220413
  Transmission Date: 20220721
  Serious: Yes (Disabling)
  Sender: FDA-Public Use
  Company Number: US-BIOGEN-2021BI01069581

PATIENT
  Sex: Female

DRUGS (2)
  1. TYSABRI [Suspect]
     Active Substance: NATALIZUMAB
     Indication: Multiple sclerosis
     Route: 065
     Dates: start: 20211015
  2. ANTHRAX VACCINE ADSORBED NOS [Suspect]
     Active Substance: BACILLUS ANTHRACIS STRAIN V770-NP1-R ANTIGEN
     Indication: Antibiotic prophylaxis
     Route: 065

REACTIONS (1)
  - Vaccination complication [Unknown]
